FAERS Safety Report 7207491-1 (Version None)
Quarter: 2011Q1

REPORT INFORMATION
  Report Type: 
  Country: None (occurrence: None)
  Receive Date: 20110103
  Receipt Date: 20101221
  Transmission Date: 20110831
  Serious: Yes (Hospitalization)
  Sender: FDA-Public Use
  Company Number: GB-JNJFOC-20101207304

PATIENT
  Age: 34 Year
  Sex: Female

DRUGS (4)
  1. LORATADINE [Concomitant]
  2. FLUOXETINE [Concomitant]
  3. PARACETAMOL [Suspect]
  4. PARACETAMOL [Suspect]
     Indication: ILL-DEFINED DISORDER

REACTIONS (5)
  - HYPOKALAEMIA [None]
  - CARDIAC ARREST [None]
  - ELECTROCARDIOGRAM QT PROLONGED [None]
  - INTENTIONAL OVERDOSE [None]
  - TORSADE DE POINTES [None]
